FAERS Safety Report 9215537 (Version 2)
Quarter: 2013Q2

REPORT INFORMATION
  Report Type: Spontaneous
  Country: US (occurrence: US)
  Receive Date: 20130407
  Receipt Date: 20130426
  Transmission Date: 20140414
  Serious: No
  Sender: FDA-Public Use
  Company Number: US-TEVA-392632USA

PATIENT
  Age: 58 Year
  Sex: Female

DRUGS (15)
  1. QVAR [Suspect]
     Indication: NASAL CONGESTION
     Route: 055
     Dates: start: 20130215, end: 201302
  2. QVAR [Suspect]
     Dates: start: 201302, end: 20130319
  3. VALTREX [Concomitant]
     Route: 048
  4. SYNTHROID [Concomitant]
     Route: 048
  5. PREMARIN [Concomitant]
     Dosage: .625
     Route: 048
  6. OXYCODONE [Concomitant]
     Dosage: 45 MILLIGRAM DAILY;
     Route: 048
  7. DILAUDID [Concomitant]
  8. ALPRAZOLAM [Concomitant]
     Dosage: 3 MILLIGRAM DAILY;
     Route: 048
  9. NEXIUM [Concomitant]
     Dosage: 80 MILLIGRAM DAILY;
     Route: 048
  10. PROAIR [Concomitant]
     Dosage: 360 MICROGRAM DAILY; 2 PUFFS
     Route: 055
  11. ZYRTEC [Concomitant]
     Dosage: 10 MILLIGRAM DAILY; AS NEEDED
     Route: 048
  12. GUIAFENESIN [Concomitant]
     Dosage: 800 MILLIGRAM DAILY;
     Route: 048
  13. TRAZODONE [Concomitant]
     Dosage: 150 MILLIGRAM DAILY;
     Route: 048
  14. BUMETANIDE [Concomitant]
     Dosage: .5 MILLIGRAM DAILY;
     Route: 048
  15. DETROL LA [Concomitant]
     Dosage: 4 MILLIGRAM DAILY;
     Route: 048

REACTIONS (3)
  - Diarrhoea [Recovered/Resolved]
  - Lethargy [Recovered/Resolved]
  - Asthenia [Recovered/Resolved]
